FAERS Safety Report 14675637 (Version 3)
Quarter: 2021Q3

REPORT INFORMATION
  Report Type: Spontaneous
  Country: JP (occurrence: JP)
  Receive Date: 20180323
  Receipt Date: 20210730
  Transmission Date: 20211014
  Serious: Yes (Other)
  Sender: FDA-Public Use
  Company Number: JP-PFIZER INC-2018119906

PATIENT
  Age: 74 Year
  Sex: Female

DRUGS (6)
  1. CLOPIDOGREL [Concomitant]
     Active Substance: CLOPIDOGREL BISULFATE
     Indication: ANTIPLATELET THERAPY
     Dosage: 75 MG/DAY
  2. ASPIRIN [ACETYLSALICYLIC ACID] [Concomitant]
     Active Substance: ASPIRIN
     Indication: ANTIPLATELET THERAPY
     Dosage: 100 MG/DAY
  3. HEPARIN [Concomitant]
     Active Substance: HEPARIN SODIUM
     Indication: THERAPEUTIC PROCEDURE
     Dosage: 5000 IU
     Route: 013
  4. PACLITAXEL. [Suspect]
     Active Substance: PACLITAXEL
     Indication: THERAPEUTIC PROCEDURE
     Dosage: UNK
     Route: 013
  5. PACLITAXEL. [Suspect]
     Active Substance: PACLITAXEL
     Indication: ARTERIAL STENOSIS
  6. HEPARIN [Concomitant]
     Active Substance: HEPARIN SODIUM
     Indication: ARTERIAL STENOSIS

REACTIONS (1)
  - Vascular stent thrombosis [Not Recovered/Not Resolved]
